FAERS Safety Report 12827202 (Version 1)
Quarter: 2016Q4

REPORT INFORMATION
  Report Type: Spontaneous
  Country: US (occurrence: US)
  Receive Date: 20161006
  Receipt Date: 20161006
  Transmission Date: 20170207
  Serious: No
  Sender: FDA-Public Use
  Company Number: US-INDIVIOR LIMITED-INDV-089629-2016

PATIENT
  Sex: Male

DRUGS (2)
  1. ALCOHOL. [Suspect]
     Active Substance: ALCOHOL
     Indication: PRODUCT USED FOR UNKNOWN INDICATION
     Dosage: 4 DROPS
     Route: 060
     Dates: start: 201603, end: 20160404
  2. SUBOXONE [Suspect]
     Active Substance: BUPRENORPHINE HYDROCHLORIDE\NALOXONE HYDROCHLORIDE
     Indication: DRUG DEPENDENCE
     Dosage: 4 MG, QD, FOR ABOUT 2 YEARS
     Route: 060
     Dates: start: 2014, end: 20160404

REACTIONS (7)
  - Nausea [Recovered/Resolved]
  - Energy increased [Recovered/Resolved]
  - Headache [Not Recovered/Not Resolved]
  - Therapeutic response unexpected [Recovered/Resolved]
  - Wrong technique in product usage process [Recovered/Resolved]
  - Drug ineffective [Recovered/Resolved]
  - Euphoric mood [Recovered/Resolved]

NARRATIVE: CASE EVENT DATE: 2014
